FAERS Safety Report 6486563-3 (Version None)
Quarter: 2009Q4

REPORT INFORMATION
  Report Type: 
  Country: None (occurrence: None)
  Receive Date: 20091209
  Receipt Date: 20091209
  Transmission Date: 20100525
  Serious: Yes (Life-Threatening, Other)
  Sender: FDA-Public Use
  Company Number: None

PATIENT
  Age: 34 Year
  Sex: Female
  Weight: 81.1939 kg

DRUGS (1)
  1. TOPIRAMATE [Suspect]
     Indication: MIGRAINE WITH AURA
     Dosage: 50MG TWICE A DAY PO
     Route: 048
     Dates: start: 20091105, end: 20091208

REACTIONS (11)
  - ABNORMAL DREAMS [None]
  - ACTIVITIES OF DAILY LIVING IMPAIRED [None]
  - APHASIA [None]
  - FEELING ABNORMAL [None]
  - IMPAIRED DRIVING ABILITY [None]
  - NIGHT BLINDNESS [None]
  - NIGHTMARE [None]
  - PALPITATIONS [None]
  - PARAESTHESIA [None]
  - THINKING ABNORMAL [None]
  - VISION BLURRED [None]
